FAERS Safety Report 6533763-X (Version None)
Quarter: 2010Q1

REPORT INFORMATION
  Report Type: 
  Country: None (occurrence: None)
  Receive Date: 20100111
  Receipt Date: 20090113
  Transmission Date: 20100710
  Serious: No
  Sender: FDA-Public Use
  Company Number: US-ABBOTT-09P-163-0497548-00

PATIENT

DRUGS (1)
  1. VICODIN [Suspect]
     Indication: HERPES ZOSTER
     Dates: start: 19980101, end: 19980101

REACTIONS (1)
  - HEART RATE INCREASED [None]
